FAERS Safety Report 5123696-8 (Version None)
Quarter: 2006Q4

REPORT INFORMATION
  Report Type: 
  Country: None (occurrence: None)
  Receive Date: 20061010
  Receipt Date: 20060927
  Transmission Date: 20070319
  Serious: Yes (Life-Threatening, Other)
  Sender: FDA-Public Use
  Company Number: PHBS2006JP15033

PATIENT

DRUGS (1)
  1. CYCLOSPORINE [Suspect]
     Indication: CORD BLOOD TRANSPLANT THERAPY

REACTIONS (3)
  - ACQUIRED HAEMOPHILIA [None]
  - GRAFT VERSUS HOST DISEASE [None]
  - TOXIC INDUCED ENCEPHALOPATHY [None]
